FAERS Safety Report 6998825-1 (Version None)
Quarter: 2010Q3

REPORT INFORMATION
  Report Type: 
  Country: None (occurrence: None)
  Receive Date: 20100920
  Receipt Date: 20071019
  Transmission Date: 20110219
  Serious: Yes (Other)
  Sender: FDA-Public Use
  Company Number: US-ASTRAZENECA-2006UW22054

PATIENT
  Age: 48 Year
  Sex: Male

DRUGS (6)
  1. SEROQUEL [Suspect]
     Indication: SLEEP DISORDER
     Route: 048
     Dates: start: 20030415, end: 20060131
  2. SEROQUEL [Suspect]
     Route: 048
     Dates: start: 20040101, end: 20070101
  3. XANAX [Concomitant]
     Dates: start: 20030122
  4. PROZAC [Concomitant]
     Dates: start: 20050412
  5. DOXEPIN HCL [Concomitant]
     Indication: SLEEP DISORDER
     Dates: start: 20050412
  6. LEXAPRO [Concomitant]
     Dosage: 10-20 MG
     Dates: start: 20050412

REACTIONS (1)
  - PANCREATITIS [None]
